FAERS Safety Report 5565692-2 (Version None)
Quarter: 2007Q4

REPORT INFORMATION
  Report Type: 
  Country: None (occurrence: None)
  Receive Date: 20071218
  Receipt Date: 20071210
  Transmission Date: 20080405
  Serious: Yes (Hospitalization)
  Sender: FDA-Public Use
  Company Number: FR-ABBOTT-07P-056-0427979-00

PATIENT
  Sex: Female

DRUGS (10)
  1. LIPANTHYL TABLETS [Suspect]
     Indication: DRUG USE FOR UNKNOWN INDICATION
     Route: 048
     Dates: end: 20070704
  2. ACETAMINOPHEN W/ PROPOXYPHENE HCL [Suspect]
     Indication: ABDOMINAL PAIN UPPER
     Route: 048
     Dates: end: 20070704
  3. GLIMEPIRIDE [Suspect]
     Indication: TYPE 2 DIABETES MELLITUS
     Route: 048
     Dates: end: 20070706
  4. GLIMEPIRIDE [Suspect]
     Route: 048
     Dates: start: 20070707, end: 20070710
  5. GLIMEPIRIDE [Suspect]
     Route: 048
     Dates: start: 20070711, end: 20070711
  6. GLIMEPIRIDE [Suspect]
     Route: 048
     Dates: start: 20070712, end: 20070712
  7. RANITIDINE HYDROCHLORIDE [Suspect]
     Indication: TYPE 2 DIABETES MELLITUS
     Route: 048
     Dates: end: 20070804
  8. ACARBOSE [Concomitant]
     Indication: TYPE 2 DIABETES MELLITUS
     Route: 048
  9. DONEPEZIL HCL [Concomitant]
     Indication: DEMENTIA ALZHEIMER'S TYPE
     Route: 048
     Dates: end: 20070712
  10. DIOVAN HCT [Concomitant]
     Indication: DRUG USE FOR UNKNOWN INDICATION
     Route: 048

REACTIONS (3)
  - DISORIENTATION [None]
  - DISTURBANCE IN ATTENTION [None]
  - HYPOGLYCAEMIC COMA [None]
